FAERS Safety Report 9528642 (Version 1)
Quarter: 2013Q3

REPORT INFORMATION
  Report Type: Spontaneous
  Country: US (occurrence: US)
  Receive Date: 20130917
  Receipt Date: 20130917
  Transmission Date: 20140515
  Serious: No
  Sender: FDA-Public Use
  Company Number: US-BANPHARM-20120250

PATIENT
  Age: 87 Year
  Sex: Female
  Weight: 68.34 kg

DRUGS (1)
  1. ZYRTEC LIQUID GELS 10 MG [Suspect]
     Indication: SINUS DISORDER
     Dosage: 1 DF,
     Route: 048
     Dates: start: 20121011, end: 20121011

REACTIONS (4)
  - Peripheral coldness [Not Recovered/Not Resolved]
  - Asthenia [Not Recovered/Not Resolved]
  - Fatigue [Not Recovered/Not Resolved]
  - Product label issue [Not Recovered/Not Resolved]
